FAERS Safety Report 10699720 (Version 1)
Quarter: 2015Q1

REPORT INFORMATION
  Report Type: Spontaneous
  Country: US (occurrence: US)
  Receive Date: 20150109
  Receipt Date: 20150109
  Transmission Date: 20150721
  Serious: Yes (Other)
  Sender: FDA-Public Use
  Company Number: US-AMGEN INC.-USASP2015000922

PATIENT
  Age: 58 Year
  Sex: Female

DRUGS (2)
  1. ENBREL [Suspect]
     Active Substance: ETANERCEPT
     Indication: RHEUMATOID ARTHRITIS
     Dosage: 50 MG, QWK
     Route: 065
     Dates: start: 20141124
  2. METHOTREXATE [Concomitant]
     Active Substance: METHOTREXATE
     Dosage: 20 MG, QWK
     Dates: start: 2014

REACTIONS (8)
  - Urinary tract infection [Not Recovered/Not Resolved]
  - Erythema [Not Recovered/Not Resolved]
  - Blood cholesterol increased [Not Recovered/Not Resolved]
  - Nodule [Not Recovered/Not Resolved]
  - Swelling [Not Recovered/Not Resolved]
  - Joint effusion [Not Recovered/Not Resolved]
  - Tenderness [Not Recovered/Not Resolved]
  - Overweight [Not Recovered/Not Resolved]

NARRATIVE: CASE EVENT DATE: 20141230
